FAERS Safety Report 8601156-7 (Version None)
Quarter: 2012Q3

REPORT INFORMATION
  Report Type: 
  Country: None (occurrence: None)
  Receive Date: 20120817
  Receipt Date: 20120814
  Transmission Date: 20120928
  Serious: Yes (Other)
  Sender: FDA-Public Use
  Company Number: PHEH2012US014251

PATIENT
  Sex: Female

DRUGS (2)
  1. COREG [Concomitant]
     Dosage: 20 MG, BID
  2. CARBAMAZEPINE [Suspect]
     Dosage: 400 MG, BID

REACTIONS (5)
  - TRANSIENT ISCHAEMIC ATTACK [None]
  - CONVULSION [None]
  - DIZZINESS [None]
  - NAUSEA [None]
  - HEADACHE [None]
